FAERS Safety Report 6670342-8 (Version None)
Quarter: 2010Q2

REPORT INFORMATION
  Report Type: 
  Country: None (occurrence: None)
  Receive Date: 20100405
  Receipt Date: 20100323
  Transmission Date: 20101027
  Serious: Yes (Other)
  Sender: FDA-Public Use
  Company Number: B0643741A

PATIENT
  Age: 50 Year
  Sex: Male

DRUGS (1)
  1. ZYBAN [Suspect]
     Dosage: ORAL
     Route: 048

REACTIONS (8)
  - ATAXIA [None]
  - CSF LACTATE INCREASED [None]
  - CSF PROTEIN INCREASED [None]
  - DYSARTHRIA [None]
  - GRAND MAL CONVULSION [None]
  - LOSS OF CONSCIOUSNESS [None]
  - RETROGRADE AMNESIA [None]
  - STATUS EPILEPTICUS [None]
